FAERS Safety Report 9513050 (Version 10)
Quarter: 2019Q2

REPORT INFORMATION
  Report Type: Spontaneous
  Country: US (occurrence: US)
  Receive Date: 20130910
  Receipt Date: 20190507
  Transmission Date: 20190711
  Serious: Yes (Other)
  Sender: FDA-Public Use
  Company Number: US-PFIZER INC-2013257347

PATIENT
  Age: 53 Year
  Sex: Female
  Weight: 59 kg

DRUGS (23)
  1. SYNTHROID [Concomitant]
     Active Substance: LEVOTHYROXINE SODIUM
     Dosage: 0.88 MG, UNK
     Dates: start: 2012
  2. GENOTROPIN [Suspect]
     Active Substance: SOMATROPIN
     Dosage: 1.6 MG, 1X/DAY [EVERY NIGHT]
     Route: 058
     Dates: start: 20130330
  3. GENOTROPIN [Suspect]
     Active Substance: SOMATROPIN
     Dosage: 1 MG, DAILY
     Route: 058
  4. HYDROCHLOROTHIAZIDE. [Concomitant]
     Active Substance: HYDROCHLOROTHIAZIDE
     Dosage: 25 MG, UNK
     Dates: start: 2012
  5. GENOTROPIN [Suspect]
     Active Substance: SOMATROPIN
     Indication: GROWTH HORMONE DEFICIENCY
     Dosage: UNK, 1X/DAY
     Route: 058
     Dates: start: 2012
  6. VALIUM [Concomitant]
     Active Substance: DIAZEPAM
     Dosage: UNK
     Dates: start: 199411
  7. NEXIUM [Concomitant]
     Active Substance: ESOMEPRAZOLE MAGNESIUM
     Dosage: 20 MG, UNK
     Dates: start: 199411
  8. ATORVASTATIN [Concomitant]
     Active Substance: ATORVASTATIN
     Dosage: 10 MG, UNK
     Dates: start: 197203
  9. LIDODERM [Concomitant]
     Active Substance: LIDOCAINE
     Dosage: UNK
     Dates: start: 199411
  10. ETODOLAC. [Concomitant]
     Active Substance: ETODOLAC
     Dosage: 600 MG, UNK
     Dates: start: 199411
  11. LUNESTA [Concomitant]
     Active Substance: ESZOPICLONE
     Dosage: 3 MG, UNK
     Dates: start: 2013
  12. VIT B 12 [Concomitant]
     Active Substance: CYANOCOBALAMIN
     Dosage: 2500 MG, UNK
     Dates: start: 2012
  13. ZOFRAN [Concomitant]
     Active Substance: ONDANSETRON HYDROCHLORIDE
     Dosage: 4 MG, UNK
     Dates: start: 201101
  14. GENOTROPIN [Suspect]
     Active Substance: SOMATROPIN
     Dosage: 1.6 MG, DAILY
     Route: 058
  15. KADIAN [Concomitant]
     Active Substance: MORPHINE SULFATE
     Dosage: 30 MG, UNK
     Dates: start: 199411
  16. METFORMIN [Concomitant]
     Active Substance: METFORMIN HYDROCHLORIDE
     Dosage: 500 MG, UNK
     Dates: start: 2012
  17. CYANOCOBALAMIN. [Concomitant]
     Active Substance: CYANOCOBALAMIN
     Dosage: UNK, CYANOCOBALAMIN 1000 INJ)
     Dates: start: 2012
  18. VICODIN HP [Concomitant]
     Active Substance: ACETAMINOPHEN\HYDROCODONE BITARTRATE
     Dosage: UNK
     Dates: start: 199411
  19. GENOTROPIN [Suspect]
     Active Substance: SOMATROPIN
     Dosage: 1.2 MG, DAILY
     Route: 058
  20. GENOTROPIN [Suspect]
     Active Substance: SOMATROPIN
     Dosage: 1.6 MG, DAILY
     Dates: start: 20130327
  21. ALLOPURINOL. [Concomitant]
     Active Substance: ALLOPURINOL
     Dosage: 100 MG, UNK
     Dates: start: 2012
  22. PHENERGAN [Concomitant]
     Active Substance: PROMETHAZINE HYDROCHLORIDE
     Dosage: 25 MG, UNK
     Dates: start: 199411
  23. FLEXERIL [Concomitant]
     Active Substance: CYCLOBENZAPRINE HYDROCHLORIDE
     Dosage: 5 MG, UNK
     Dates: start: 199411

REACTIONS (18)
  - Appetite disorder [Not Recovered/Not Resolved]
  - Pain [Not Recovered/Not Resolved]
  - Hyperhidrosis [Recovered/Resolved]
  - Weight increased [Not Recovered/Not Resolved]
  - Impaired gastric emptying [Recovered/Resolved]
  - Multiple sclerosis [Unknown]
  - Drug ineffective [Unknown]
  - Insomnia [Not Recovered/Not Resolved]
  - Product dose omission [Recovered/Resolved]
  - Food craving [Recovered/Resolved]
  - Lack of injection site rotation [Unknown]
  - Weight decreased [Recovered/Resolved]
  - Vomiting [Recovered/Resolved]
  - Fatigue [Recovered/Resolved]
  - Injection site bruising [Recovered/Resolved]
  - Fluid retention [Recovered/Resolved]
  - Nausea [Recovered/Resolved]
  - Blood count abnormal [Not Recovered/Not Resolved]

NARRATIVE: CASE EVENT DATE: 201308
